FAERS Safety Report 7369300-X (Version None)
Quarter: 2011Q1

REPORT INFORMATION
  Report Type: 
  Country: None (occurrence: None)
  Receive Date: 20110323
  Receipt Date: 20110314
  Transmission Date: 20110831
  Serious: Yes (Hospitalization)
  Sender: FDA-Public Use
  Company Number: B0698808A

PATIENT
  Sex: Female
  Weight: 125 kg

DRUGS (2)
  1. GLUCOPHAGE [Concomitant]
  2. AVANDIA [Suspect]
     Indication: DIABETES MELLITUS
     Dosage: 4MG PER DAY
     Route: 048
     Dates: start: 19990101

REACTIONS (3)
  - CARDIAC FAILURE CONGESTIVE [None]
  - RENAL FAILURE ACUTE [None]
  - CEREBROVASCULAR ACCIDENT [None]
